FAERS Safety Report 17144100 (Version 1)
Quarter: 2019Q4

REPORT INFORMATION
  Report Type: Spontaneous
  Country: US (occurrence: US)
  Receive Date: 20191119
  Receipt Date: 20191119
  Transmission Date: 20200122
  Serious: No
  Sender: FDA-Public Use
  Company Number: None

PATIENT
  Age: 50 Year
  Sex: Male

DRUGS (1)
  1. BUPROPION. [Suspect]
     Active Substance: BUPROPION
     Indication: DEPRESSION
     Route: 048
     Dates: start: 20171227, end: 20190808

REACTIONS (4)
  - Anxiety [None]
  - Negative thoughts [None]
  - Insomnia [None]
  - Serotonin syndrome [None]

NARRATIVE: CASE EVENT DATE: 20190806
